FAERS Safety Report 12134769 (Version 3)
Quarter: 2016Q2

REPORT INFORMATION
  Report Type: Spontaneous
  Country: US (occurrence: US)
  Receive Date: 20160301
  Receipt Date: 20160531
  Transmission Date: 20160815
  Serious: Yes (Hospitalization)
  Sender: FDA-Public Use
  Company Number: US-ACTELION-A-NJ2016-131941

PATIENT
  Age: 67 Year
  Sex: Female

DRUGS (1)
  1. VELETRI [Suspect]
     Active Substance: EPOPROSTENOL
     Indication: PULMONARY ARTERIAL HYPERTENSION
     Dosage: 15.7 NG/KG, PER MIN
     Route: 042
     Dates: start: 20141110

REACTIONS (3)
  - Asthenia [Unknown]
  - Fall [Unknown]
  - Pulmonary embolism [Unknown]
